FAERS Safety Report 10434735 (Version 1)
Quarter: 2014Q3

REPORT INFORMATION
  Report Type: Spontaneous
  Country: US (occurrence: US)
  Receive Date: 20140906
  Receipt Date: 20140906
  Transmission Date: 20150326
  Serious: No
  Sender: FDA-Public Use
  Company Number: US-009507513-1409USA002110

PATIENT
  Age: 25 Year
  Sex: Female
  Weight: 77.98 kg

DRUGS (2)
  1. METFORMIN [Concomitant]
     Active Substance: METFORMIN HYDROCHLORIDE
  2. NUVARING [Suspect]
     Active Substance: ETHINYL ESTRADIOL\ETONOGESTREL
     Indication: CONTRACEPTION
     Dosage: DOSE/FREQUENCY: 3 WEEKS IN, 1 WEEK OUT, 1 RING
     Route: 067
     Dates: start: 20140810

REACTIONS (3)
  - Vaginal discharge [Unknown]
  - Metrorrhagia [Unknown]
  - Amenorrhoea [Unknown]

NARRATIVE: CASE EVENT DATE: 20140818
